FAERS Safety Report 4864051-5 (Version None)
Quarter: 2005Q4

REPORT INFORMATION
  Report Type: 
  Country: None (occurrence: None)
  Receive Date: 20051219
  Receipt Date: 20051219
  Transmission Date: 20060501
  Serious: Yes (Disabling)
  Sender: FDA-Public Use
  Company Number: None

PATIENT
  Age: 44 Year
  Sex: Male
  Weight: 95.2554 kg

DRUGS (1)
  1. LARIAM [Suspect]
     Dosage: ONCE PER WEEK
     Dates: start: 19901201, end: 19910301

REACTIONS (15)
  - AGITATION [None]
  - ANXIETY [None]
  - ARTHRALGIA [None]
  - CONFUSIONAL STATE [None]
  - FATIGUE [None]
  - HEADACHE [None]
  - INSOMNIA [None]
  - MEMORY IMPAIRMENT [None]
  - MYALGIA [None]
  - NECK PAIN [None]
  - PRURITUS [None]
  - RASH [None]
  - SKIN DISORDER [None]
  - SKIN LESION [None]
  - THINKING ABNORMAL [None]
